FAERS Safety Report 6436471-9 (Version None)
Quarter: 2009Q4

REPORT INFORMATION
  Report Type: 
  Country: None (occurrence: None)
  Receive Date: 20091111
  Receipt Date: 20091105
  Transmission Date: 20100525
  Serious: Yes (Hospitalization)
  Sender: FDA-Public Use
  Company Number: FR-TEVA-214426ISR

PATIENT
  Age: 79 Year
  Sex: Female
  Weight: 60 kg

DRUGS (4)
  1. FLUOROURACIL [Suspect]
     Indication: COLORECTAL CANCER
     Route: 040
     Dates: start: 20070220, end: 20070221
  2. FLUOROURACIL [Suspect]
     Route: 041
     Dates: start: 20070220
  3. IRINOTECAN HCL [Suspect]
     Indication: COLORECTAL CANCER
     Dates: start: 20070220, end: 20070221
  4. FOLINIC ACID [Suspect]
     Indication: COLORECTAL CANCER
     Route: 040
     Dates: start: 20070220, end: 20070221

REACTIONS (4)
  - DIARRHOEA [None]
  - NEUTROPENIA [None]
  - PYREXIA [None]
  - RENAL FAILURE ACUTE [None]
